FAERS Safety Report 4466191-1 (Version None)
Quarter: 2004Q3

REPORT INFORMATION
  Report Type: 
  Country: None (occurrence: None)
  Receive Date: 20040930
  Receipt Date: 20040922
  Transmission Date: 20050211
  Serious: Yes (Hospitalization)
  Sender: FDA-Public Use
  Company Number: 04H-062-0274527-00

PATIENT
  Age: 37 Year
  Sex: Female
  Weight: 70 kg

DRUGS (4)
  1. PHENYTOIN SODIUM [Suspect]
     Indication: CONVULSION
     Dosage: SEE IMAGE
     Route: 042
  2. CLONAZEPAM [Concomitant]
  3. .... [Concomitant]
  4. CARBAMAZEPINE [Concomitant]

REACTIONS (3)
  - INJECTION SITE REACTION [None]
  - POST-TRAUMATIC OSTEOPOROSIS [None]
  - PURPLE GLOVE SYNDROME [None]
